FAERS Safety Report 10446163 (Version 1)
Quarter: 2014Q3

REPORT INFORMATION
  Report Type: Spontaneous
  Country: US (occurrence: US)
  Receive Date: 20140910
  Receipt Date: 20140910
  Transmission Date: 20150326
  Serious: Yes (Other)
  Sender: FDA-Public Use
  Company Number: US-AMGEN-USASP2014068481

PATIENT
  Age: 51 Year
  Sex: Female

DRUGS (1)
  1. SENSIPAR [Suspect]
     Active Substance: CINACALCET HYDROCHLORIDE
     Indication: HYPERPARATHYROIDISM
     Dosage: 90 MG, BID
     Route: 065

REACTIONS (5)
  - Feeling abnormal [Unknown]
  - Coeliac disease [Recovering/Resolving]
  - Lung neoplasm malignant [Recovering/Resolving]
  - Pancreatitis chronic [Recovering/Resolving]
  - Hypercalcaemia [Unknown]
